FAERS Safety Report 8221501-4 (Version None)
Quarter: 2012Q1

REPORT INFORMATION
  Report Type: 
  Country: None (occurrence: None)
  Receive Date: 20120320
  Receipt Date: 20120316
  Transmission Date: 20120608
  Serious: Yes (Death, Other)
  Sender: FDA-Public Use
  Company Number: PHHY2012DE023391

PATIENT
  Age: 20 Year
  Sex: Female

DRUGS (3)
  1. BISOPROLOL FUMARATE [Concomitant]
  2. MINOCYCLINE HCL [Suspect]
     Indication: ACNE
  3. POTASSIUM IODIDE [Suspect]
     Indication: HYPOTHYROIDISM

REACTIONS (3)
  - HYPOTHYROIDISM [None]
  - DEATH [None]
  - THYROID DISORDER [None]
